FAERS Safety Report 4999129-9 (Version None)
Quarter: 2006Q2

REPORT INFORMATION
  Report Type: 
  Country: None (occurrence: None)
  Receive Date: 20060509
  Receipt Date: 20060420
  Transmission Date: 20061013
  Serious: Yes (Hospitalization)
  Sender: FDA-Public Use
  Company Number: US200604003428

PATIENT
  Age: 61 Year
  Sex: Male

DRUGS (2)
  1. HUMATROPE [Suspect]
     Indication: HYPOTHALAMO-PITUITARY DISORDERS
     Dosage: 1.2 MG,
  2. HUMATROPEN (HUMATROPEN) PEN, REUSABLE [Concomitant]

REACTIONS (3)
  - EMBOLISM [None]
  - PNEUMONIA [None]
  - THROMBOSIS [None]
